FAERS Safety Report 4704610-3 (Version None)
Quarter: 2005Q2

REPORT INFORMATION
  Report Type: 
  Country: None (occurrence: None)
  Receive Date: 20050630
  Receipt Date: 20050622
  Transmission Date: 20051028
  Serious: Yes (Other)
  Sender: FDA-Public Use
  Company Number: 2005091240

PATIENT
  Age: 63 Year
  Sex: Male
  Weight: 71.6683 kg

DRUGS (6)
  1. LIPITOR [Suspect]
     Indication: TRIPLE VESSEL BYPASS GRAFT
     Dosage: (1 IN 1 D), ORAL
     Route: 048
     Dates: start: 19980101
  2. ALLOPURINOL [Concomitant]
  3. DRIXORAL [Concomitant]
  4. FOLIC ACID [Concomitant]
  5. ASPIRIN [Concomitant]
  6. ATENOLOL [Concomitant]

REACTIONS (4)
  - BLOOD TRIGLYCERIDES INCREASED [None]
  - CARDIOVASCULAR DISORDER [None]
  - HIGH DENSITY LIPOPROTEIN INCREASED [None]
  - TRIPLE VESSEL BYPASS GRAFT [None]
